FAERS Safety Report 10086652 (Version 1)
Quarter: 2014Q2

REPORT INFORMATION
  Report Type: Spontaneous
  Country: US (occurrence: US)
  Receive Date: 20140418
  Receipt Date: 20140418
  Transmission Date: 20141212
  Serious: Yes (Other)
  Sender: FDA-Public Use
  Company Number: US-PFIZER INC-2014107918

PATIENT
  Age: 38 Year
  Sex: Male
  Weight: 94 kg

DRUGS (1)
  1. LYRICA [Suspect]
     Indication: DIABETIC NEUROPATHY
     Dosage: 75 MG, 4X/DAY
     Dates: start: 201312, end: 201403

REACTIONS (8)
  - Loss of consciousness [Unknown]
  - Syncope [Unknown]
  - Fall [Unknown]
  - Scratch [Unknown]
  - Peripheral swelling [Unknown]
  - Localised infection [Unknown]
  - Therapeutic response changed [Unknown]
  - Pre-existing condition improved [Unknown]
